FAERS Safety Report 7337923-X (Version None)
Quarter: 2011Q1

REPORT INFORMATION
  Report Type: 
  Country: None (occurrence: None)
  Receive Date: 20110210
  Receipt Date: 20101117
  Transmission Date: 20110831
  Serious: No
  Sender: FDA-Public Use
  Company Number: 1000017379

PATIENT
  Age: 23 Year
  Sex: Female

DRUGS (7)
  1. SAVELLA [Suspect]
     Indication: PAIN
     Dosage: 50 MG (50 MG, 2 IN 1 D), ORAL, 25 MG (25 MG, 1 IN 1 D), ORAL
     Route: 048
     Dates: start: 20101111, end: 20101112
  2. SAVELLA [Suspect]
     Indication: PAIN
     Dosage: 50 MG (50 MG, 2 IN 1 D), ORAL, 25 MG (25 MG, 1 IN 1 D), ORAL
     Route: 048
     Dates: start: 20101113, end: 20101113
  3. SAVELLA [Suspect]
     Indication: PAIN
     Dosage: 12.5 MG (12.5 MG, 2 IN 1 D), ORAL
     Route: 048
     Dates: start: 20101114, end: 20101114
  4. BIRTH CONTROL PILL (NOS) BIRTH CONTROL PILL (NOS) BIRTH CONTROL PILL ( [Concomitant]
  5. SAVELLA [Suspect]
     Indication: PAIN
     Dosage: 12.5 MG (12.5 MG, 1 IN 1 D), ORAL, 12.5 MG (12.5 MG, 2 IN 1 D), ORAL, 25 MG (25 MG, 2 IN 1 D), ORAL
     Route: 048
     Dates: start: 20101104, end: 20101104
  6. SAVELLA [Suspect]
     Indication: PAIN
     Dosage: 12.5 MG (12.5 MG, 1 IN 1 D), ORAL, 12.5 MG (12.5 MG, 2 IN 1 D), ORAL, 25 MG (25 MG, 2 IN 1 D), ORAL
     Route: 048
     Dates: start: 20101105, end: 20101106
  7. SAVELLA [Suspect]
     Indication: PAIN
     Dosage: 12.5 MG (12.5 MG, 1 IN 1 D), ORAL, 12.5 MG (12.5 MG, 2 IN 1 D), ORAL, 25 MG (25 MG, 2 IN 1 D), ORAL
     Route: 048
     Dates: start: 20101107, end: 20101110

REACTIONS (7)
  - NIGHTMARE [None]
  - ANXIETY [None]
  - CRYING [None]
  - SOMNOLENCE [None]
  - NAUSEA [None]
  - AFFECTIVE DISORDER [None]
  - DEPRESSION [None]
